FAERS Safety Report 13289783 (Version 15)
Quarter: 2021Q2

REPORT INFORMATION
  Report Type: Spontaneous
  Country: US (occurrence: US)
  Receive Date: 20170302
  Receipt Date: 20210611
  Transmission Date: 20210716
  Serious: Yes (Congenital Anomaly, Other)
  Sender: FDA-Public Use
  Company Number: PHEH2017US006298

PATIENT
  Sex: Male

DRUGS (1)
  1. ZOFRAN ODT [Suspect]
     Active Substance: ONDANSETRON HYDROCHLORIDE
     Indication: FOETAL EXPOSURE DURING PREGNANCY
     Dosage: MOTHER DOSE: 4 MG, Q4H
     Route: 064

REACTIONS (80)
  - Pulmonary valve stenosis congenital [Unknown]
  - Atrial septal defect [Unknown]
  - Ventricular septal defect [Unknown]
  - Pathological fracture [Unknown]
  - Right ventricular enlargement [Unknown]
  - Bundle branch block right [Unknown]
  - Right ventricular failure [Unknown]
  - Arrhythmia [Unknown]
  - Pleural effusion [Unknown]
  - Hyperhidrosis [Unknown]
  - Lethargy [Unknown]
  - Upper respiratory tract infection [Unknown]
  - Patent ductus arteriosus [Unknown]
  - Neonatal respiratory distress [Unknown]
  - Tympanic membrane perforation [Unknown]
  - Arthralgia [Unknown]
  - Influenza like illness [Unknown]
  - Ear pain [Unknown]
  - Sinus tachycardia [Unknown]
  - Pharyngitis [Unknown]
  - Cytogenetic abnormality [Unknown]
  - Pneumonia [Unknown]
  - Autism spectrum disorder [Unknown]
  - Apnoeic attack [Unknown]
  - Intellectual disability [Unknown]
  - Foetal exposure during pregnancy [Unknown]
  - Gastritis [Unknown]
  - Speech sound disorder [Unknown]
  - Velopharyngeal incompetence [Unknown]
  - Pain in extremity [Unknown]
  - Cardiomegaly [Unknown]
  - Otitis media acute [Unknown]
  - Speech disorder [Unknown]
  - Seborrhoeic dermatitis [Unknown]
  - Epistaxis [Unknown]
  - Gastric dilatation [Unknown]
  - Pyrexia [Unknown]
  - Cardiac murmur [Unknown]
  - Congenital pulmonary artery anomaly [Unknown]
  - Heart disease congenital [Unknown]
  - Subacute endocarditis [Unknown]
  - Loss of consciousness [Unknown]
  - Respiratory failure [Unknown]
  - Developmental delay [Unknown]
  - Ventricular dyskinesia [Unknown]
  - Dyspnoea [Unknown]
  - Fatigue [Unknown]
  - Tricuspid valve incompetence [Unknown]
  - Bradycardia [Unknown]
  - Molluscum contagiosum [Unknown]
  - Pallor [Unknown]
  - Conjunctivitis [Unknown]
  - Stomatitis [Unknown]
  - Left-to-right cardiac shunt [Unknown]
  - Dysmorphism [Unknown]
  - Supraventricular extrasystoles [Unknown]
  - Syncope [Unknown]
  - Fall [Unknown]
  - Cough [Recovering/Resolving]
  - Dizziness [Unknown]
  - Fallot^s tetralogy [Unknown]
  - Pulmonary oedema neonatal [Recovered/Resolved]
  - Croup infectious [Unknown]
  - Right ventricular hypertrophy [Unknown]
  - Dermatitis atopic [Unknown]
  - Injury [Unknown]
  - Postpericardiotomy syndrome [Unknown]
  - Dermatitis diaper [Unknown]
  - Contusion [Unknown]
  - Scar [Unknown]
  - Pulmonary valve incompetence [Unknown]
  - Right ventricular dysfunction [Unknown]
  - Cellulitis [Recovering/Resolving]
  - Atelectasis neonatal [Unknown]
  - Right ventricular dilatation [Unknown]
  - Right atrial dilatation [Unknown]
  - Pneumothorax [Unknown]
  - Lung hyperinflation [Unknown]
  - Cyanosis [Unknown]
  - Viral infection [Unknown]

NARRATIVE: CASE EVENT DATE: 20071114
